FAERS Safety Report 10073909 (Version 1)
Quarter: 2014Q2

REPORT INFORMATION
  Report Type: Spontaneous
  Country: US (occurrence: US)
  Receive Date: 20140411
  Receipt Date: 20140411
  Transmission Date: 20141212
  Serious: Yes (Other)
  Sender: FDA-Public Use
  Company Number: US-009507513-1404USA004705

PATIENT
  Sex: 0

DRUGS (2)
  1. ZOCOR [Suspect]
     Route: 048
  2. LYRICA [Suspect]

REACTIONS (2)
  - Rhabdomyolysis [Unknown]
  - Oedema [Unknown]
